FAERS Safety Report 5574248-7 (Version None)
Quarter: 2007Q4

REPORT INFORMATION
  Report Type: 
  Country: None (occurrence: None)
  Receive Date: 20071221
  Receipt Date: 20071221
  Transmission Date: 20080405
  Serious: Yes (Other)
  Sender: FDA-Public Use
  Company Number: None

PATIENT
  Sex: Female

DRUGS (3)
  1. BUPROPION XL 300MG [Suspect]
     Indication: DEPRESSION
     Dosage: 300MG DAILY PO LAST SEEN THERAPY 12-12-07 MED APPT 08-30-2007
     Route: 048
     Dates: end: 20071212
  2. BUPROPION XL 300MG [Suspect]
     Indication: DEPRESSION
     Dosage: 300MG DAILY PO LAST SEEN THERAPY 12-12-07 MED APPT 08-30-2007
     Route: 048
     Dates: start: 20070830
  3. LEXAPRO [Concomitant]

REACTIONS (3)
  - ASTHENIA [None]
  - DEPRESSION [None]
  - DRUG INEFFECTIVE [None]
